FAERS Safety Report 17845002 (Version 1)
Quarter: 2020Q2

REPORT INFORMATION
  Report Type: Spontaneous
  Country: US (occurrence: US)
  Receive Date: 20200529
  Receipt Date: 20200529
  Transmission Date: 20200714
  Serious: Yes (Disabling)
  Sender: FDA-Public Use
  Company Number: None

PATIENT
  Age: 33 Year
  Sex: Male
  Weight: 54.1 kg

DRUGS (22)
  1. MELATONIN [Concomitant]
     Active Substance: MELATONIN
     Dates: start: 20200527
  2. DEXAMETHASONE. [Concomitant]
     Active Substance: DEXAMETHASONE
     Dates: start: 20200528
  3. GLYCOLAX [Concomitant]
     Active Substance: POLYETHYLENE GLYCOL 3350
     Dates: start: 20200528
  4. PRECEDEX [Concomitant]
     Active Substance: DEXMEDETOMIDINE HYDROCHLORIDE
     Dates: start: 20200528, end: 20200529
  5. MIDAZOLAM. [Concomitant]
     Active Substance: MIDAZOLAM
     Dates: start: 20200527, end: 20200527
  6. ENOXAPARIN [Concomitant]
     Active Substance: ENOXAPARIN
     Dates: start: 20200528
  7. ACETAMINOPHEN PO [Concomitant]
     Dates: start: 20200527
  8. ACYCLOVIR IV [Concomitant]
     Dates: start: 20200528, end: 20200528
  9. SENNA [Concomitant]
     Active Substance: SENNA LEAF\SENNOSIDES\SENNOSIDES A AND B
     Dates: start: 20200528
  10. CLINDAMYCIN IV [Concomitant]
     Dates: start: 20200528
  11. ETOMIDATE. [Concomitant]
     Active Substance: ETOMIDATE
     Dates: start: 20200527, end: 20200527
  12. OMNIPAQUE [Concomitant]
     Active Substance: IOHEXOL
     Dates: start: 20200528, end: 20200528
  13. CEFTRIAXONE. [Concomitant]
     Active Substance: CEFTRIAXONE
     Dates: start: 20200528
  14. PROPOFOL. [Concomitant]
     Active Substance: PROPOFOL
     Dates: start: 20200527, end: 20200528
  15. FAMOTIDINE. [Concomitant]
     Active Substance: FAMOTIDINE
     Dates: start: 20200528
  16. PERIDEX [Concomitant]
     Active Substance: CHLORHEXIDINE GLUCONATE
     Dates: start: 20200527
  17. LORAZEPAM. [Concomitant]
     Active Substance: LORAZEPAM
     Dates: start: 20200527, end: 20200527
  18. REMDESIVIR. [Suspect]
     Active Substance: REMDESIVIR
     Indication: COVID-19 PNEUMONIA
     Dosage: ?          OTHER FREQUENCY:X1 LOADING DOSE;?
     Route: 041
     Dates: start: 20200528
  19. FENTANYL. [Concomitant]
     Active Substance: FENTANYL
     Dates: start: 20200528, end: 20200528
  20. ROCURONIUM [Concomitant]
     Active Substance: ROCURONIUM BROMIDE
     Dates: start: 20200527, end: 20200527
  21. VANCOMYCIN [Concomitant]
     Active Substance: VANCOMYCIN
     Dates: start: 20200527, end: 20200527
  22. DOXYCYCLINE IV [Concomitant]
     Dates: start: 20200528

REACTIONS (2)
  - Quadriparesis [None]
  - Hypoxia [None]

NARRATIVE: CASE EVENT DATE: 20200529
